FAERS Safety Report 10268233 (Version 1)
Quarter: 2014Q2

REPORT INFORMATION
  Report Type: Spontaneous
  Country: CH (occurrence: CH)
  Receive Date: 20140630
  Receipt Date: 20140630
  Transmission Date: 20141212
  Serious: Yes (Death)
  Sender: FDA-Public Use
  Company Number: CH-BAYER-2014-094891

PATIENT
  Age: 75 Year
  Sex: Female

DRUGS (7)
  1. ASPIRIN CARDIO [Suspect]
     Dosage: 100 MG, QD
     Route: 048
     Dates: start: 201303, end: 20131208
  2. CIPRALEX [Suspect]
     Dosage: 5 MG, QD
     Dates: start: 2013, end: 20131208
  3. CATAPRESAN [Concomitant]
     Dosage: 1 +0.5 TABLET IN THE MORNING
     Route: 048
  4. BELOC [Concomitant]
     Dosage: 50 MG, QD
     Dates: start: 201310
  5. TRIATEC [Concomitant]
     Dosage: 5 MG, QD
     Dates: start: 201310
  6. ADALAT [Concomitant]
     Dosage: 60 MG, QD
     Route: 048
     Dates: start: 201310
  7. CALCIUM ACETATE [Concomitant]
     Dosage: 750 MG, BID
     Route: 048
     Dates: start: 201310

REACTIONS (1)
  - Cerebral haematoma [Fatal]
